FAERS Safety Report 9599251 (Version 1)
Quarter: 2013Q4

REPORT INFORMATION
  Report Type: Spontaneous
  Country: US (occurrence: US)
  Receive Date: 20131004
  Receipt Date: 20131004
  Transmission Date: 20140711
  Serious: No
  Sender: FDA-Public Use
  Company Number: US-AMGEN-USASP2013028530

PATIENT
  Age: 56 Year
  Sex: Female
  Weight: 62.59 kg

DRUGS (9)
  1. ENBREL [Suspect]
     Indication: PRODUCT USED FOR UNKNOWN INDICATION
     Dosage: 50 MG, QWK
     Route: 058
  2. PLAQUENIL                          /00072602/ [Concomitant]
     Dosage: 200 MG, UNK
  3. METHOTREXATE [Concomitant]
     Dosage: 100/41 ML
  4. TRAMADOL HCL [Concomitant]
     Dosage: 150 MG, ER UNK
  5. PREDNISONE [Concomitant]
     Dosage: 10 MG, UNK
  6. HYDROCORTISON                      /00028601/ [Concomitant]
     Dosage: 2.5 %, UNK
  7. FOLIC ACID [Concomitant]
     Dosage: UNK
  8. XANAX [Concomitant]
     Dosage: 0.25 MG, UNK
  9. GLUCOSAMINE + CHONDROITIN          /01430901/ [Concomitant]
     Dosage: UNK

REACTIONS (2)
  - Diarrhoea [Unknown]
  - Dehydration [Unknown]
